FAERS Safety Report 6308869-0 (Version None)
Quarter: 2009Q3

REPORT INFORMATION
  Report Type: 
  Country: None (occurrence: None)
  Receive Date: 20090813
  Receipt Date: 20090224
  Transmission Date: 20100115
  Serious: Yes (Other)
  Sender: FDA-Public Use
  Company Number: US-ALLERGAN-0816456US

PATIENT
  Age: 72 Year
  Sex: Female

DRUGS (11)
  1. COMBIGAN [Suspect]
     Indication: GLAUCOMA
     Dosage: 1 GTT, BID
     Route: 047
     Dates: start: 20081211, end: 20081220
  2. TRAVATAN Z [Suspect]
     Indication: DRUG USE FOR UNKNOWN INDICATION
  3. HYZAAR [Concomitant]
     Indication: HYPERTENSION
     Dosage: 100/25 MG, QAM
  4. ZOCOR [Concomitant]
     Indication: BLOOD CHOLESTEROL INCREASED
     Dosage: 20 MG, UNK
  5. GLUCOPHAGE [Concomitant]
     Indication: DIABETES MELLITUS
  6. METOPROLOL SUCCINATE [Concomitant]
     Indication: HYPERTENSION
     Dosage: 50 MG, QAM
  7. METOPROLOL SUCCINATE [Concomitant]
     Dosage: 25 MG, QPM
  8. ACIPHEX [Concomitant]
     Indication: GASTROOESOPHAGEAL REFLUX DISEASE
  9. SYNTHROID [Concomitant]
     Indication: HYPOTHYROIDISM
     Dosage: 100 MG, QD
  10. JANUVIA [Concomitant]
     Indication: DIABETES MELLITUS
     Dosage: 15 MG, QD
  11. XALATAN [Concomitant]
     Indication: GLAUCOMA
     Dosage: 1 GTT, QHS

REACTIONS (7)
  - BREAST PAIN [None]
  - CHEST DISCOMFORT [None]
  - DRY MOUTH [None]
  - EYE PAIN [None]
  - HEADACHE [None]
  - SOMNOLENCE [None]
  - VISION BLURRED [None]
